FAERS Safety Report 10228667 (Version 1)
Quarter: 2014Q2

REPORT INFORMATION
  Report Type: Spontaneous
  Country: BG (occurrence: BG)
  Receive Date: 20140610
  Receipt Date: 20140610
  Transmission Date: 20141212
  Serious: Yes (Hospitalization)
  Sender: FDA-Public Use
  Company Number: BG-ASTRAZENECA-2014SE38680

PATIENT
  Age: 80 Year
  Sex: Male

DRUGS (5)
  1. BRILIQUE [Suspect]
     Indication: ACUTE MYOCARDIAL INFARCTION
     Route: 048
  2. ASPIRIN [Concomitant]
  3. ATORVASTATIN [Concomitant]
  4. LODOZ [Concomitant]
  5. OMEPRAZOLE [Concomitant]

REACTIONS (5)
  - Fatigue [Unknown]
  - Faeces discoloured [Unknown]
  - Ulcer [Unknown]
  - Haemoglobin decreased [Unknown]
  - Dyspnoea [Unknown]
